FAERS Safety Report 5705241-9 (Version None)
Quarter: 2008Q2

REPORT INFORMATION
  Report Type: 
  Country: None (occurrence: None)
  Receive Date: 20080410
  Receipt Date: 20080407
  Transmission Date: 20081010
  Serious: Yes (Life-Threatening, Disabling)
  Sender: FDA-Public Use
  Company Number: 2008-174245-NL

PATIENT
  Age: 76 Year
  Sex: Female

DRUGS (1)
  1. ROCURONIUM BROMIDE [Suspect]

REACTIONS (3)
  - APALLIC SYNDROME [None]
  - CARDIAC ARREST [None]
  - RESPIRATORY ARREST [None]
